FAERS Safety Report 7548527-8 (Version None)
Quarter: 2011Q2

REPORT INFORMATION
  Report Type: 
  Country: None (occurrence: None)
  Receive Date: 20110615
  Receipt Date: 20110602
  Transmission Date: 20111010
  Serious: Yes (Other)
  Sender: FDA-Public Use
  Company Number: US-BAYER-2010-005347

PATIENT
  Age: 19 Year
  Sex: Female
  Weight: 61 kg

DRUGS (11)
  1. YAZ [Suspect]
     Indication: PRODUCT USED FOR UNKNOWN INDICATION
     Dosage: UNK
     Dates: start: 20061201, end: 20091201
  2. FLUDROCORTISONE ACETATE [Concomitant]
  3. ASCORBIC ACID [Concomitant]
  4. CLONAZEPAM [Concomitant]
  5. METFORMIN HCL [Concomitant]
  6. YASMIN [Suspect]
     Indication: PRODUCT USED FOR UNKNOWN INDICATION
     Dosage: UNK
     Route: 048
     Dates: start: 20061201, end: 20091201
  7. CIPROFLOXACIN HCL [Concomitant]
  8. IBUPROFEN [Concomitant]
  9. ZEGERID [Concomitant]
  10. DIURETICS [Concomitant]
  11. ALLEGRA [Concomitant]

REACTIONS (6)
  - EMOTIONAL DISTRESS [None]
  - PAIN [None]
  - CHOLECYSTITIS CHRONIC [None]
  - GALLBLADDER DISORDER [None]
  - ANXIETY DISORDER [None]
  - PANIC ATTACK [None]
